FAERS Safety Report 7796866-8 (Version None)
Quarter: 2011Q4

REPORT INFORMATION
  Report Type: 
  Country: None (occurrence: None)
  Receive Date: 20111005
  Receipt Date: 20110928
  Transmission Date: 20120403
  Serious: Yes (Other)
  Sender: FDA-Public Use
  Company Number: CA-UCBSA-040931

PATIENT
  Sex: Male

DRUGS (4)
  1. CLOBAZAM [Concomitant]
     Indication: CONVULSION
     Dosage: 20 MG X 2
     Route: 048
  2. TEGRETOL-XR [Concomitant]
     Indication: CONVULSION
     Dosage: 600 MG X 2
     Route: 048
  3. DILANTIN [Concomitant]
     Indication: CONVULSION
     Dosage: 200 MG X 2
     Route: 048
  4. VIMPAT [Suspect]
     Indication: CONVULSION
     Dosage: DAILY DOSE: UP TO 300 MG PER DAY
     Route: 048

REACTIONS (1)
  - PRIAPISM [None]
